FAERS Safety Report 11676581 (Version 1)
Quarter: 2015Q4

REPORT INFORMATION
  Report Type: Spontaneous
  Country: US (occurrence: US)
  Receive Date: 20151028
  Receipt Date: 20151028
  Transmission Date: 20160304
  Serious: No
  Sender: FDA-Public Use
  Company Number: US-PFIZER INC-2015362364

PATIENT
  Sex: Male

DRUGS (2)
  1. GENTIAN VIOLET [Suspect]
     Active Substance: GENTIAN VIOLET
     Indication: EAR PRURITUS
     Dosage: UNK
  2. NEOMYCIN SULFATE. [Suspect]
     Active Substance: NEOMYCIN SULFATE
     Indication: EAR PRURITUS
     Dosage: UNK

REACTIONS (4)
  - Condition aggravated [Unknown]
  - Drug hypersensitivity [Unknown]
  - Inflammation [Unknown]
  - Rash [Unknown]
